FAERS Safety Report 24437248 (Version 3)
Quarter: 2025Q1

REPORT INFORMATION
  Report Type: Spontaneous
  Country: US (occurrence: US)
  Receive Date: 20241015
  Receipt Date: 20250317
  Transmission Date: 20250408
  Serious: Yes (Life-Threatening, Other)
  Sender: NOVARTIS
  Company Number: US-002147023-NVSC2024US201151

PATIENT
  Sex: Female

DRUGS (2)
  1. LETROZOLE [Suspect]
     Active Substance: LETROZOLE
     Indication: Product used for unknown indication
     Route: 065
  2. IBRANCE [Suspect]
     Active Substance: PALBOCICLIB
     Indication: Product used for unknown indication
     Dosage: 125 MG QD (3 WEEKS ON AND 7 DAYS OFF, HAD BEEN ON 2 YEARS)
     Route: 065

REACTIONS (19)
  - Neutropenia [Unknown]
  - White blood cell count abnormal [Unknown]
  - Fatigue [Unknown]
  - Tumour marker increased [Unknown]
  - Anger [Unknown]
  - Frustration tolerance decreased [Unknown]
  - Hot flush [Unknown]
  - Night sweats [Unknown]
  - Skin odour abnormal [Unknown]
  - Affective disorder [Unknown]
  - Sleep disorder [Unknown]
  - Nocturia [Unknown]
  - Unevaluable event [Unknown]
  - Blood oestrogen [Unknown]
  - Menopause [Unknown]
  - Drug intolerance [Unknown]
  - Enuresis [Unknown]
  - Hyperhidrosis [Unknown]
  - White blood cell count decreased [Unknown]
